FAERS Safety Report 9333079 (Version 2)
Quarter: 2013Q3

REPORT INFORMATION
  Report Type: Spontaneous
  Country: JP (occurrence: JP)
  Receive Date: 20130606
  Receipt Date: 20130701
  Transmission Date: 20140515
  Serious: Yes (Hospitalization)
  Sender: FDA-Public Use
  Company Number: JP-EISAI INC-E7389-03726-SPO-JP

PATIENT
  Age: 47 Year
  Sex: Female

DRUGS (10)
  1. HALAVEN [Suspect]
     Indication: BREAST CANCER
     Route: 041
     Dates: start: 20130301
  2. ZITHROMAC [Concomitant]
     Route: 048
  3. RESPLEN [Concomitant]
  4. MUCODYNE [Concomitant]
  5. LOXOPROFEN NA [Concomitant]
  6. OPSO [Concomitant]
     Route: 048
  7. NOVAMIN [Concomitant]
     Route: 048
  8. OMEPRAZOLE [Concomitant]
     Route: 048
  9. METHYCOOL [Concomitant]
     Route: 048
  10. AMERGE [Concomitant]
     Route: 048

REACTIONS (1)
  - Eyelid ptosis [Not Recovered/Not Resolved]
